FAERS Safety Report 15960541 (Version 1)
Quarter: 2019Q1

REPORT INFORMATION
  Report Type: Spontaneous
  Country: US (occurrence: US)
  Receive Date: 20190213
  Receipt Date: 20190213
  Transmission Date: 20190417
  Serious: Yes (Disabling)
  Sender: FDA-Public Use
  Company Number: None

PATIENT
  Age: 57 Year
  Sex: Female
  Weight: 41.4 kg

DRUGS (2)
  1. KLONOPIN [Suspect]
     Active Substance: CLONAZEPAM
     Indication: INSOMNIA
     Dosage: ?          QUANTITY:1 TABLET(S);?
     Route: 048
     Dates: start: 20121114, end: 20190121
  2. SYNTHROID [Concomitant]
     Active Substance: LEVOTHYROXINE SODIUM

REACTIONS (12)
  - Disturbance in attention [None]
  - Weight decreased [None]
  - Impaired work ability [None]
  - Anxiety [None]
  - Attention deficit/hyperactivity disorder [None]
  - Depression [None]
  - Loss of employment [None]
  - Fatigue [None]
  - General physical health deterioration [None]
  - Suicidal ideation [None]
  - Gastrointestinal disorder [None]
  - Quality of life decreased [None]

NARRATIVE: CASE EVENT DATE: 20121114
